FAERS Safety Report 5146880-6 (Version None)
Quarter: 2006Q4

REPORT INFORMATION
  Report Type: 
  Country: None (occurrence: None)
  Receive Date: 20061109
  Receipt Date: 20061030
  Transmission Date: 20070319
  Serious: Yes (Other)
  Sender: FDA-Public Use
  Company Number: GB-GLAXOSMITHKLINE-B0445507A

PATIENT
  Age: 43 Year
  Sex: Female

DRUGS (7)
  1. ONDANSETRON [Suspect]
     Indication: DRUG USE FOR UNKNOWN INDICATION
     Dates: start: 20061004, end: 20061004
  2. ACETAMINOPHEN W/ CODEINE [Concomitant]
  3. DIAZEPAM [Concomitant]
     Dosage: 5MG THREE TIMES PER DAY
     Route: 048
  4. PAROXETINE HCL [Concomitant]
     Dosage: 40MG PER DAY
     Route: 048
  5. SALBUTAMOL [Concomitant]
     Dosage: 200MCG AS REQUIRED
     Route: 055
  6. ZOPICLONE [Concomitant]
     Dosage: 7.5MG PER DAY
     Route: 048
  7. NIQUITIN CQ [Concomitant]
     Dosage: 21MG PER DAY

REACTIONS (1)
  - LYMPHADENOPATHY [None]
